FAERS Safety Report 17189563 (Version 1)
Quarter: 2019Q4

REPORT INFORMATION
  Report Type: Spontaneous
  Country: US (occurrence: US)
  Receive Date: 20191223
  Receipt Date: 20191223
  Transmission Date: 20200122
  Serious: Yes (Hospitalization)
  Sender: FDA-Public Use
  Company Number: US-SAREPTA THERAPEUTICS INC.-SRP2019-000612

PATIENT
  Age: 23 Year
  Sex: Male
  Weight: 48.2 kg

DRUGS (1)
  1. EXONDYS 51 [Suspect]
     Active Substance: ETEPLIRSEN
     Indication: PRODUCT USED FOR UNKNOWN INDICATION
     Dosage: 1500 MG, WEEKLY
     Route: 042

REACTIONS (1)
  - Fall [Unknown]

NARRATIVE: CASE EVENT DATE: 20191217
